FAERS Safety Report 21105562 (Version 2)
Quarter: 2022Q3

REPORT INFORMATION
  Report Type: Spontaneous
  Country: FR (occurrence: FR)
  Receive Date: 20220720
  Receipt Date: 20220720
  Transmission Date: 20221027
  Serious: Yes (Other)
  Sender: FDA-Public Use
  Company Number: FR-JAZZ-2022-FR-021775

PATIENT
  Age: 8 Year
  Sex: Female
  Weight: 18 kg

DRUGS (3)
  1. CANNABIDIOL [Suspect]
     Active Substance: CANNABIDIOL
     Indication: Rett syndrome
     Dosage: 4 MILLILITER
     Route: 048
     Dates: start: 20211215, end: 20220415
  2. KEPPRA [Concomitant]
     Active Substance: LEVETIRACETAM
     Indication: Epilepsy
     Dosage: 380 MILLIGRAM
     Route: 048
     Dates: start: 20200801
  3. KEPPRA [Concomitant]
     Active Substance: LEVETIRACETAM
     Dosage: 380 MILLIGRAM
     Dates: start: 20220621

REACTIONS (3)
  - Decreased appetite [Recovered/Resolved]
  - Drug ineffective for unapproved indication [Recovering/Resolving]
  - Off label use [Unknown]

NARRATIVE: CASE EVENT DATE: 20211215
